FAERS Safety Report 4828581-4 (Version None)
Quarter: 2005Q4

REPORT INFORMATION
  Report Type: 
  Country: None (occurrence: None)
  Receive Date: 20051115
  Receipt Date: 20051102
  Transmission Date: 20060501
  Serious: Yes (Other)
  Sender: FDA-Public Use
  Company Number: 2005SE06372

PATIENT
  Sex: Male

DRUGS (3)
  1. ATACAND [Suspect]
     Route: 048
  2. PURICOS [Concomitant]
  3. ZOCOR [Concomitant]

REACTIONS (1)
  - SUICIDAL IDEATION [None]
